FAERS Safety Report 8353221-X (Version None)
Quarter: 2012Q2

REPORT INFORMATION
  Report Type: 
  Country: None (occurrence: None)
  Receive Date: 20120511
  Receipt Date: 20120430
  Transmission Date: 20120825
  Serious: Yes (Hospitalization)
  Sender: FDA-Public Use
  Company Number: CA-JNJFOC-20120501074

PATIENT
  Sex: Female

DRUGS (2)
  1. REMICADE [Suspect]
     Indication: CROHN'S DISEASE
     Route: 042
     Dates: start: 20110801, end: 20110801
  2. REMICADE [Suspect]
     Route: 042

REACTIONS (5)
  - DIARRHOEA [None]
  - CONDITION AGGRAVATED [None]
  - JOINT SWELLING [None]
  - WEIGHT DECREASED [None]
  - DECREASED APPETITE [None]
